FAERS Safety Report 9184545 (Version 2)
Quarter: 2013Q4

REPORT INFORMATION
  Report Type: Spontaneous
  Country: CA (occurrence: CA)
  Receive Date: 20121101
  Receipt Date: 20131002
  Transmission Date: 20140711
  Serious: Yes (Other)
  Sender: FDA-Public Use
  Company Number: CA-ROCHE-1151088

PATIENT
  Age: 15 Year
  Sex: Male

DRUGS (7)
  1. XOLAIR [Suspect]
     Indication: ASTHMA
     Route: 058
     Dates: start: 20100408
  2. XOLAIR [Suspect]
     Route: 065
     Dates: start: 20121025
  3. XOLAIR [Suspect]
     Route: 065
     Dates: start: 20130925
  4. ADVAIR [Concomitant]
  5. SINGULAIR [Concomitant]
  6. SINGULAIR [Concomitant]
  7. HYDROCORTISONE [Concomitant]

REACTIONS (1)
  - Heart rate increased [Recovering/Resolving]
